FAERS Safety Report 14374927 (Version 1)
Quarter: 2018Q1

REPORT INFORMATION
  Report Type: Spontaneous
  Country: US (occurrence: US)
  Receive Date: 20180111
  Receipt Date: 20180111
  Transmission Date: 20180509
  Serious: No
  Sender: FDA-Public Use
  Company Number: US-PFIZER INC-2016409267

PATIENT
  Age: 69 Year
  Sex: Female
  Weight: 68.4 kg

DRUGS (5)
  1. XELJANZ [Suspect]
     Active Substance: TOFACITINIB CITRATE
     Indication: RHEUMATOID ARTHRITIS
     Dosage: 5 MG, 2X/DAY (2 TABLETS IN THE MORNING AND 1 TABLET IN THE EVENING/10 MG QAM + 5 MG QPM)
  2. XELJANZ [Suspect]
     Active Substance: TOFACITINIB CITRATE
     Indication: NEURODERMATITIS
     Dosage: 5 MG, 3X/DAY (5 MG TABLETS, 3 TIMES A DAY, 2 IN AM, 1 IN PM, BY MOUTH)
     Route: 048
     Dates: start: 2017
  3. XELJANZ [Suspect]
     Active Substance: TOFACITINIB CITRATE
     Indication: DRUG THERAPY
  4. XELJANZ [Suspect]
     Active Substance: TOFACITINIB CITRATE
     Indication: RASH
  5. LISINOPRIL. [Concomitant]
     Active Substance: LISINOPRIL
     Indication: BLOOD PRESSURE ABNORMAL
     Dosage: 10 MG, 1X/DAY
     Route: 048
     Dates: start: 2016

REACTIONS (2)
  - Product use issue [Unknown]
  - Fatigue [Recovered/Resolved]
